FAERS Safety Report 10036419 (Version 2)
Quarter: 2014Q1

REPORT INFORMATION
  Report Type: Spontaneous
  Country: US (occurrence: US)
  Receive Date: 20140325
  Receipt Date: 20140325
  Transmission Date: 20141002
  Serious: Yes (Other)
  Sender: FDA-Public Use
  Company Number: US-US-EMD SERONO, INC.-7029927

PATIENT
  Sex: Male

DRUGS (8)
  1. REBIF [Suspect]
     Indication: MULTIPLE SCLEROSIS
     Route: 058
     Dates: start: 20031203
  2. FLOMAX [Concomitant]
     Indication: BLADDER DISORDER
  3. LEXAPRO [Concomitant]
     Indication: DEPRESSION
  4. ALPRAZOLAM [Concomitant]
     Indication: ANXIETY
     Dates: end: 20140202
  5. LORTAB [Concomitant]
     Indication: PAIN
     Dates: end: 20140202
  6. TIZANIDINE [Concomitant]
     Indication: MUSCLE SPASMS
  7. XANAX [Concomitant]
     Indication: ANXIETY
     Dates: end: 20140202
  8. LORTAB 7.5 [Concomitant]
     Indication: PAIN
     Dates: end: 20140202

REACTIONS (4)
  - Convulsion [Recovered/Resolved]
  - Drug withdrawal convulsions [Unknown]
  - Loss of bladder sensation [Unknown]
  - Influenza like illness [Unknown]
